FAERS Safety Report 8956890 (Version 2)
Quarter: 2013Q1

REPORT INFORMATION
  Report Type: Report from Study
  Country: US (occurrence: US)
  Receive Date: 20121210
  Receipt Date: 20130115
  Transmission Date: 20140127
  Serious: Yes (Other)
  Sender: FDA-Public Use
  Company Number: US-US-EMD SERONO, INC.-7180530

PATIENT
  Age: 62 Year
  Sex: Male
  Weight: 77 kg

DRUGS (2)
  1. REBIF [Suspect]
     Indication: MULTIPLE SCLEROSIS
     Route: 058
     Dates: start: 20120719
  2. IBUPROFEN [Concomitant]
     Indication: PREMEDICATION

REACTIONS (4)
  - Ankylosing spondylitis [Not Recovered/Not Resolved]
  - Intervertebral disc degeneration [Not Recovered/Not Resolved]
  - Spondylolisthesis [Not Recovered/Not Resolved]
  - Clonus [Not Recovered/Not Resolved]
